FAERS Safety Report 9487118 (Version 2)
Quarter: 2013Q3

REPORT INFORMATION
  Report Type: Spontaneous
  Country: JP (occurrence: None)
  Receive Date: 20130823
  Receipt Date: 20130911
  Transmission Date: 20140515
  Serious: Yes (Hospitalization)
  Sender: FDA-Public Use
  Company Number: SYM-2013-09390

PATIENT
  Age: 59 Year
  Sex: Male

DRUGS (3)
  1. FLUOROURACIL (FLUOROURACIL) (FLUOROURACIL) [Suspect]
     Indication: HEAD AND NECK CANCER
     Dates: start: 20120730, end: 20120803
  2. TAXOTERE (DOCETAXEL) (DOCETAXEL) [Suspect]
     Indication: HEAD AND NECK CANCER
     Route: 042
     Dates: start: 20120730, end: 20120803
  3. CISPLATIN (CISPLATIN) (CISPLATIN) [Suspect]
     Indication: HEAD AND NECK CANCER
     Dates: start: 20120730, end: 20120730

REACTIONS (2)
  - Neutropenia [None]
  - Pyrexia [None]
